FAERS Safety Report 8045510-3 (Version None)
Quarter: 2012Q1

REPORT INFORMATION
  Report Type: 
  Country: None (occurrence: None)
  Receive Date: 20120113
  Receipt Date: 20120111
  Transmission Date: 20120608
  Serious: Yes (Other)
  Sender: FDA-Public Use
  Company Number: US-ROCHE-783795

PATIENT
  Sex: Female
  Weight: 59.02 kg

DRUGS (4)
  1. BENTYL [Concomitant]
  2. ACCUTANE [Suspect]
     Indication: ACNE
     Route: 065
     Dates: start: 19910401, end: 19910901
  3. KEFLEX [Concomitant]
  4. DEMULEN 1/35-21 [Concomitant]

REACTIONS (5)
  - EMOTIONAL DISTRESS [None]
  - INFLAMMATORY BOWEL DISEASE [None]
  - DEPRESSION [None]
  - PROCTITIS ULCERATIVE [None]
  - SUICIDAL IDEATION [None]
